FAERS Safety Report 26010978 (Version 1)
Quarter: 2025Q4

REPORT INFORMATION
  Report Type: Spontaneous
  Country: JP (occurrence: JP)
  Receive Date: 20251107
  Receipt Date: 20251107
  Transmission Date: 20260117
  Serious: Yes (Other)
  Sender: MYLAN
  Company Number: JP-MYE-2025M1092921AA

PATIENT
  Age: 66 Year
  Sex: Female
  Weight: 62 kg

DRUGS (22)
  1. LYRICA [Suspect]
     Active Substance: PREGABALIN
     Indication: Hypoaesthesia
  2. IRINOTECAN HYDROCHLORIDE [Suspect]
     Active Substance: IRINOTECAN HYDROCHLORIDE
     Indication: Pancreatic carcinoma
     Dosage: 240 MILLIGRAM
  3. IRINOTECAN HYDROCHLORIDE [Suspect]
     Active Substance: IRINOTECAN HYDROCHLORIDE
     Dosage: 200 MILLIGRAM
  4. LEVOLEUCOVORIN CALCIUM [Suspect]
     Active Substance: LEVOLEUCOVORIN CALCIUM
     Indication: Pancreatic carcinoma
     Dosage: 330 MILLIGRAM
  5. FLUOROURACIL [Suspect]
     Active Substance: FLUOROURACIL
     Indication: Pancreatic carcinoma
     Dosage: 3960 MILLIGRAM
  6. OXALIPLATIN [Suspect]
     Active Substance: OXALIPLATIN
     Indication: Pancreatic carcinoma
     Dosage: 140 MILLIGRAM
  7. OXALIPLATIN [Suspect]
     Active Substance: OXALIPLATIN
     Dosage: 107 MILLIGRAM
  8. DULOXETINE [Concomitant]
     Active Substance: DULOXETINE
     Indication: Depressive symptom
     Dosage: 20 MILLIGRAM, QD
  9. BEPOTASTINE BESILATE [Concomitant]
     Active Substance: BEPOTASTINE BESILATE
     Indication: Seasonal allergy
     Dosage: 20 MILLIGRAM, BID
  10. HERBALS [Concomitant]
     Active Substance: HERBALS
     Indication: Hypoaesthesia
     Dosage: 2.5 GRAM, TID
  11. POLAPREZINC [Concomitant]
     Active Substance: POLAPREZINC
     Indication: Product used for unknown indication
     Dosage: 75 MILLIGRAM, BID
  12. EPERISONE HYDROCHLORIDE [Concomitant]
     Active Substance: EPERISONE HYDROCHLORIDE
     Indication: Musculoskeletal stiffness
     Dosage: 50 MILLIGRAM, TID
  13. FOSAPREPITANT DIMEGLUMINE [Concomitant]
     Active Substance: FOSAPREPITANT DIMEGLUMINE
     Indication: Product used for unknown indication
     Dosage: 150 MILLIGRAM
  14. SODIUM CHLORIDE [Concomitant]
     Active Substance: SODIUM CHLORIDE
     Indication: Product used for unknown indication
     Dosage: 100 MILLILITER
  15. SODIUM CHLORIDE [Concomitant]
     Active Substance: SODIUM CHLORIDE
     Dosage: 100 MILLILITER
  16. SODIUM CHLORIDE [Concomitant]
     Active Substance: SODIUM CHLORIDE
     Dosage: 250 MILLILITER
  17. SODIUM CHLORIDE [Concomitant]
     Active Substance: SODIUM CHLORIDE
     Dosage: 250 MILLILITER
  18. SODIUM CHLORIDE [Concomitant]
     Active Substance: SODIUM CHLORIDE
     Dosage: 60.8 MILLILITER
  19. PALONOSETRON HYDROCHLORIDE [Concomitant]
     Active Substance: PALONOSETRON HYDROCHLORIDE
     Indication: Product used for unknown indication
     Dosage: 0.75 MILLIGRAM
  20. DEXAMETHASONE SODIUM PHOSPHATE [Concomitant]
     Active Substance: DEXAMETHASONE SODIUM PHOSPHATE
     Indication: Product used for unknown indication
     Dosage: 9.9 MILLIGRAM
  21. SCOPOLAMINE [Concomitant]
     Active Substance: SCOPOLAMINE
     Indication: Product used for unknown indication
     Dosage: 20 MILLIGRAM
  22. DEXTROSE [Concomitant]
     Active Substance: DEXTROSE MONOHYDRATE
     Indication: Product used for unknown indication
     Dosage: 250 MILLILITER

REACTIONS (5)
  - Renal impairment [Unknown]
  - General physical health deterioration [Unknown]
  - Dizziness [Unknown]
  - Somnolence [Unknown]
  - Malaise [Unknown]
